FAERS Safety Report 18873080 (Version 2)
Quarter: 2021Q1

REPORT INFORMATION
  Report Type: Spontaneous
  Country: US (occurrence: US)
  Receive Date: 20210210
  Receipt Date: 20210224
  Transmission Date: 20210420
  Serious: No
  Sender: FDA-Public Use
  Company Number: US-PFIZER INC-2021069780

PATIENT
  Age: 24 Year
  Sex: Female

DRUGS (1)
  1. DEPO?PROVERA [Suspect]
     Active Substance: MEDROXYPROGESTERONE ACETATE
     Indication: CONTRACEPTION
     Dosage: 104 MG, EVERY 3 MONTHS (104MG INJECT CONTENTS OF 1 SYRINGE UNDER THE SKIN ONCE EVERY 12 WEEK)
     Route: 058
     Dates: start: 2016

REACTIONS (3)
  - Needle issue [Unknown]
  - Device issue [Unknown]
  - Drug dose omission by device [Unknown]
